FAERS Safety Report 8068744-0 (Version None)
Quarter: 2012Q1

REPORT INFORMATION
  Report Type: 
  Country: None (occurrence: None)
  Receive Date: 20120124
  Receipt Date: 20111205
  Transmission Date: 20120608
  Serious: No
  Sender: FDA-Public Use
  Company Number: US-AMGEN-USASP2011051821

PATIENT
  Sex: Male
  Weight: 82 kg

DRUGS (14)
  1. CASODEX [Concomitant]
  2. VICODIN [Concomitant]
  3. XGEVA [Suspect]
     Indication: PROSTATE CANCER METASTATIC
     Dosage: 120 MG, QMO
     Dates: start: 20110625
  4. OXYBUTYNIN [Concomitant]
  5. KLOR-CON [Concomitant]
  6. METFORMIN HCL [Concomitant]
  7. SIMVASTATIN [Concomitant]
  8. HORMONES [Concomitant]
  9. ACTONEL [Concomitant]
  10. CALCIUM +VIT D [Concomitant]
  11. IBUPROFEN [Concomitant]
  12. GLIPIZIDE [Concomitant]
  13. ASPIRIN [Concomitant]
  14. LORAZEPAM [Concomitant]

REACTIONS (3)
  - DIZZINESS [None]
  - FATIGUE [None]
  - ANAEMIA [None]
